FAERS Safety Report 19386118 (Version 1)
Quarter: 2021Q2

REPORT INFORMATION
  Report Type: Report from Study
  Country: US (occurrence: US)
  Receive Date: 20210607
  Receipt Date: 20210607
  Transmission Date: 20210717
  Serious: Yes (Hospitalization)
  Sender: FDA-Public Use
  Company Number: US-TAKEDA-2021TUS034361

PATIENT
  Sex: Male

DRUGS (6)
  1. TEDUGLUTIDE [Suspect]
     Active Substance: TEDUGLUTIDE
     Indication: SHORT-BOWEL SYNDROME
     Dosage: UNK
     Route: 042
     Dates: start: 201702
  2. TEDUGLUTIDE [Suspect]
     Active Substance: TEDUGLUTIDE
     Indication: SHORT-BOWEL SYNDROME
     Dosage: UNK
     Route: 042
     Dates: start: 201702
  3. TPN [Concomitant]
     Active Substance: AMINO ACIDS\DEXTROSE\ELECTROLYTES NOS\SOYBEAN OIL
     Route: 065
  4. IMODIUM [Concomitant]
     Active Substance: LOPERAMIDE HYDROCHLORIDE
     Route: 065
  5. TEDUGLUTIDE [Suspect]
     Active Substance: TEDUGLUTIDE
     Indication: SHORT-BOWEL SYNDROME
     Dosage: UNK
     Route: 042
     Dates: start: 201702
  6. TEDUGLUTIDE [Suspect]
     Active Substance: TEDUGLUTIDE
     Indication: SHORT-BOWEL SYNDROME
     Dosage: UNK
     Route: 042
     Dates: start: 201702

REACTIONS (12)
  - Memory impairment [Unknown]
  - Flatulence [Unknown]
  - Injection site hypoaesthesia [Unknown]
  - Psychological trauma [Unknown]
  - Hypoaesthesia [Unknown]
  - Frustration tolerance decreased [Unknown]
  - Increased appetite [Unknown]
  - Thinking abnormal [Unknown]
  - Psychiatric symptom [Unknown]
  - Injection site pain [Unknown]
  - Joint swelling [Unknown]
  - Frequent bowel movements [Unknown]
